FAERS Safety Report 8417119-0 (Version None)
Quarter: 2012Q2

REPORT INFORMATION
  Report Type: 
  Country: None (occurrence: None)
  Receive Date: 20120606
  Receipt Date: 20120529
  Transmission Date: 20120825
  Serious: Yes (Hospitalization, Other)
  Sender: FDA-Public Use
  Company Number: US-ACTELION-A-US2012-59197

PATIENT

DRUGS (4)
  1. TRACLEER [Suspect]
     Indication: PULMONARY ARTERIAL HYPERTENSION
     Dosage: UNK
     Route: 048
     Dates: start: 20081017
  2. CALCIUM CHANNEL BLOCKERS [Concomitant]
  3. PLAVIX [Concomitant]
  4. COUMADIN [Concomitant]

REACTIONS (4)
  - LIMB OPERATION [None]
  - FATIGUE [None]
  - HAEMOGLOBIN DECREASED [None]
  - UPPER LIMB FRACTURE [None]
